FAERS Safety Report 10590525 (Version 2)
Quarter: 2014Q4

REPORT INFORMATION
  Report Type: Spontaneous
  Country: DK (occurrence: DK)
  Receive Date: 20141118
  Receipt Date: 20141128
  Transmission Date: 20150529
  Serious: Yes (Life-Threatening, Hospitalization, Other)
  Sender: FDA-Public Use
  Company Number: DK-B.I. PHARMACEUTICALS,INC./RIDGEFIELD-2014-BI-55474GD

PATIENT
  Age: 73 Year
  Sex: Male

DRUGS (1)
  1. PRADAXA [Suspect]
     Active Substance: DABIGATRAN ETEXILATE MESYLATE
     Indication: ANTICOAGULANT THERAPY
     Dosage: 220 MG
     Route: 048

REACTIONS (10)
  - Pulmonary congestion [Unknown]
  - Cold sweat [Unknown]
  - Discomfort [Unknown]
  - Cardiogenic shock [Recovered/Resolved]
  - Atelectasis [Unknown]
  - Blood lactic acid increased [Unknown]
  - Cardiac valve replacement complication [Recovered/Resolved]
  - Dyspnoea [Unknown]
  - Pleural effusion [Unknown]
  - Blood pressure decreased [Unknown]
